FAERS Safety Report 6174032-X (Version None)
Quarter: 2009Q2

REPORT INFORMATION
  Report Type: 
  Country: None (occurrence: None)
  Receive Date: 20090430
  Receipt Date: 20080218
  Transmission Date: 20091009
  Serious: No
  Sender: FDA-Public Use
  Company Number: US-ASTRAZENECA-2008UW03407

PATIENT
  Age: 68 Year
  Sex: Female

DRUGS (4)
  1. NEXIUM [Suspect]
     Indication: NAUSEA
     Route: 048
  2. LIQUID CARAFATE [Concomitant]
  3. LEVOXYL [Concomitant]
  4. ZOCOR [Concomitant]

REACTIONS (1)
  - PALPITATIONS [None]
